FAERS Safety Report 5723826-0 (Version None)
Quarter: 2008Q2

REPORT INFORMATION
  Report Type: 
  Country: None (occurrence: None)
  Receive Date: 20080428
  Receipt Date: 20080415
  Transmission Date: 20081010
  Serious: Yes (Hospitalization)
  Sender: FDA-Public Use
  Company Number: 2008BI004163

PATIENT
  Age: 41 Year
  Sex: Female

DRUGS (6)
  1. AVONEX [Suspect]
     Indication: MULTIPLE SCLEROSIS
     Dosage: 30 UG;QW;IM
     Route: 030
     Dates: start: 20070320, end: 20071001
  2. PREDNISONE TAB [Concomitant]
  3. LANTUS [Concomitant]
  4. NOVOLOG [Concomitant]
  5. PLAQUENIL [Concomitant]
  6. ZANTAC [Concomitant]

REACTIONS (18)
  - BLOOD GLUCOSE INCREASED [None]
  - COGNITIVE DISORDER [None]
  - CONSTIPATION [None]
  - DIZZINESS [None]
  - DRUG INEFFECTIVE [None]
  - EPISTAXIS [None]
  - FATIGUE [None]
  - HEADACHE [None]
  - HYPOAESTHESIA [None]
  - HYPOAESTHESIA FACIAL [None]
  - LEUKOENCEPHALOMYELITIS [None]
  - MUSCLE SPASMS [None]
  - NAUSEA [None]
  - PARAESTHESIA ORAL [None]
  - TINNITUS [None]
  - URINARY HESITATION [None]
  - VERTIGO [None]
  - VOMITING [None]
